FAERS Safety Report 9752091 (Version 1)
Quarter: 2013Q4

REPORT INFORMATION
  Report Type: Spontaneous
  Country: TW (occurrence: None)
  Receive Date: 20131211
  Receipt Date: 20131211
  Transmission Date: 20140711
  Serious: Yes (Hospitalization)
  Sender: FDA-Public Use
  Company Number: TW-ALKEM-000429

PATIENT
  Age: 74 Year
  Sex: Male

DRUGS (2)
  1. QUETIAPINE (QUETIAPINE) [Suspect]
     Indication: VASCULAR DEMENTIA
  2. WARFARIN (WARFARIN) [Suspect]
     Indication: DEEP VEIN THROMBOSIS

REACTIONS (4)
  - Drug interaction [None]
  - Prothrombin time prolonged [None]
  - Activated partial thromboplastin time prolonged [None]
  - International normalised ratio increased [None]
